FAERS Safety Report 24532906 (Version 1)
Quarter: 2024Q4

REPORT INFORMATION
  Report Type: Spontaneous
  Country: US (occurrence: US)
  Receive Date: 20241022
  Receipt Date: 20241022
  Transmission Date: 20250115
  Serious: No
  Sender: MERCK
  Company Number: US-009507513-2410USA002091

PATIENT
  Age: 62 Year
  Sex: Female
  Weight: 60.771 kg

DRUGS (2)
  1. KEYTRUDA [Suspect]
     Active Substance: PEMBROLIZUMAB
     Dosage: UNK
  2. LENVATINIB MESYLATE [Suspect]
     Active Substance: LENVATINIB MESYLATE
     Indication: Endometrial cancer
     Dosage: 8 MILLIGRAM DAILY DOSE
     Route: 048
     Dates: start: 20240625

REACTIONS (5)
  - Adverse drug reaction [Unknown]
  - Ill-defined disorder [Unknown]
  - Multi-organ disorder [Unknown]
  - Weight decreased [Unknown]
  - Vomiting [Unknown]
